FAERS Safety Report 12795550 (Version 1)
Quarter: 2016Q3

REPORT INFORMATION
  Report Type: Spontaneous
  Country: NL (occurrence: NL)
  Receive Date: 20160929
  Receipt Date: 20160929
  Transmission Date: 20161109
  Serious: Yes (Hospitalization, Other)
  Sender: FDA-Public Use
  Company Number: NL-TEVA-695403ACC

PATIENT
  Sex: Male
  Weight: 85 kg

DRUGS (2)
  1. ALENDRONINEZUUR PCH TABLET 70MG [Suspect]
     Active Substance: ALENDRONIC ACID
     Indication: OSTEOPOROSIS
     Dosage: 1 TIME PER WEEK 1 PIECE(S)
     Route: 048
     Dates: start: 2010, end: 20160902
  2. PREDNISOLON TABLET  5MG [Concomitant]
     Active Substance: PREDNISOLONE
     Dosage: 15 MILLIGRAM DAILY; 1 TIME PER DAY 3 PIECE(S)
     Route: 048
     Dates: start: 1998

REACTIONS (3)
  - Rash [Not Recovered/Not Resolved]
  - Femur fracture [Recovering/Resolving]
  - Oesophageal stenosis [Not Recovered/Not Resolved]

NARRATIVE: CASE EVENT DATE: 2013
